FAERS Safety Report 7537044-7 (Version None)
Quarter: 2011Q2

REPORT INFORMATION
  Report Type: 
  Country: None (occurrence: None)
  Receive Date: 20110609
  Receipt Date: 20110527
  Transmission Date: 20111010
  Serious: Yes (Hospitalization)
  Sender: FDA-Public Use
  Company Number: PHHY2011JP46528

PATIENT
  Age: 83 Year
  Sex: Male

DRUGS (2)
  1. LOXONIN [Concomitant]
  2. FAMVIR [Suspect]
     Indication: HERPES ZOSTER
     Dosage: 500 MG, ONE TIME DOSE (1500 MG DAILY)
     Route: 048
     Dates: start: 20110425, end: 20110426

REACTIONS (2)
  - ABASIA [None]
  - SOMNOLENCE [None]
